FAERS Safety Report 4683142-5 (Version None)
Quarter: 2005Q2

REPORT INFORMATION
  Report Type: 
  Country: None (occurrence: None)
  Receive Date: 20050602
  Receipt Date: 20050331
  Transmission Date: 20051028
  Serious: No
  Sender: FDA-Public Use
  Company Number: USA050394585

PATIENT
  Age: 47 Year
  Sex: Female

DRUGS (6)
  1. CYMBALTA [Suspect]
     Dosage: 90 MG DAY
  2. LISINOPRIL [Concomitant]
  3. LEVOTHYROXINE [Concomitant]
  4. PROVIGIL [Concomitant]
  5. LITHIUM CARBONATE [Concomitant]
  6. DETROL LA [Concomitant]

REACTIONS (1)
  - PRESCRIBED OVERDOSE [None]
